FAERS Safety Report 9839929 (Version 1)
Quarter: 2014Q1

REPORT INFORMATION
  Report Type: Spontaneous
  Country: FR (occurrence: FR)
  Receive Date: 20140124
  Receipt Date: 20140124
  Transmission Date: 20141002
  Serious: Yes (Hospitalization, Other)
  Sender: FDA-Public Use
  Company Number: FR-009507513-1401FRA007478

PATIENT
  Age: 79 Year
  Sex: Female

DRUGS (6)
  1. SINGULAIR [Suspect]
     Dosage: 10 MG, QD
     Route: 048
     Dates: end: 201310
  2. MEMANTINE [Concomitant]
  3. XARELTO [Concomitant]
  4. CACIT VITAMINE D3 [Concomitant]
  5. DIGOXIN [Concomitant]
  6. MONO-TILDIEM [Concomitant]

REACTIONS (2)
  - Epilepsy [Recovered/Resolved]
  - Disturbance in attention [Recovered/Resolved]
